FAERS Safety Report 14934357 (Version 1)
Quarter: 2018Q2

REPORT INFORMATION
  Report Type: Spontaneous
  Country: US (occurrence: US)
  Receive Date: 20180505
  Receipt Date: 20180505
  Transmission Date: 20180711
  Serious: Yes (Other)
  Sender: FDA-Public Use
  Company Number: None

PATIENT
  Age: 61 Year
  Sex: Female
  Weight: 55.8 kg

DRUGS (1)
  1. LEVAQUIN [Suspect]
     Active Substance: LEVOFLOXACIN
     Indication: PNEUMONIA
     Dosage: ?          QUANTITY:10 TABLET(S);?
     Route: 048
     Dates: start: 20150616, end: 20150625

REACTIONS (9)
  - Toxicity to various agents [None]
  - Joint range of motion decreased [None]
  - Arthralgia [None]
  - Grip strength decreased [None]
  - Paraesthesia [None]
  - Pain in extremity [None]
  - Muscle disorder [None]
  - Joint noise [None]
  - Erythema [None]

NARRATIVE: CASE EVENT DATE: 20150616
